FAERS Safety Report 10952682 (Version 3)
Quarter: 2015Q2

REPORT INFORMATION
  Report Type: Spontaneous
  Country: JP (occurrence: JP)
  Receive Date: 20150325
  Receipt Date: 20150602
  Transmission Date: 20150821
  Serious: Yes (Hospitalization)
  Sender: FDA-Public Use
  Company Number: JP-ROCHE-1555414

PATIENT
  Age: 5 Year
  Sex: Male
  Weight: 17.1 kg

DRUGS (2)
  1. SULBACILLIN (JAPAN) [Suspect]
     Active Substance: AMPICILLIN SODIUM\SULBACTAM SODIUM
     Indication: HEPATITIS
     Route: 042
     Dates: start: 20150214, end: 20150303
  2. TAMIFLU [Suspect]
     Active Substance: OSELTAMIVIR PHOSPHATE
     Indication: ANTIVIRAL PROPHYLAXIS
     Dosage: MOST RECENT DOSE PRIOR TO AE ON 02/MAR/2015.
     Route: 048
     Dates: start: 20150221, end: 20150302

REACTIONS (1)
  - Histiocytosis haematophagic [Recovering/Resolving]

NARRATIVE: CASE EVENT DATE: 20150303
